FAERS Safety Report 11810009 (Version 1)
Quarter: 2015Q4

REPORT INFORMATION
  Report Type: Spontaneous
  Country: None (occurrence: US)
  Receive Date: 20151208
  Receipt Date: 20151208
  Transmission Date: 20160305
  Serious: No
  Sender: FDA-Public Use
  Company Number: US-WATSON-2015-25548

PATIENT
  Sex: Female

DRUGS (3)
  1. TOPIRAMATE ZYDUS [Suspect]
     Active Substance: TOPIRAMATE
     Indication: MIGRAINE
     Dosage: 50 MG, DAILY
     Route: 048
     Dates: start: 20150716
  2. LUTERA [Suspect]
     Active Substance: ETHINYL ESTRADIOL\LEVONORGESTREL
     Indication: PREMENSTRUAL SYNDROME
     Dosage: UNK, UNKNOWN
     Route: 065
     Dates: start: 201504
  3. LUTERA [Suspect]
     Active Substance: ETHINYL ESTRADIOL\LEVONORGESTREL
     Dosage: UNK, UNKNOWN
     Route: 065
     Dates: start: 201411, end: 201501

REACTIONS (3)
  - Migraine [Not Recovered/Not Resolved]
  - Aura [Not Recovered/Not Resolved]
  - Dyspepsia [Not Recovered/Not Resolved]
